FAERS Safety Report 8212127-7 (Version None)
Quarter: 2012Q1

REPORT INFORMATION
  Report Type: 
  Country: None (occurrence: None)
  Receive Date: 20120315
  Receipt Date: 20120313
  Transmission Date: 20120608
  Serious: Yes (Death, Other)
  Sender: FDA-Public Use
  Company Number: PHHY2012GT022530

PATIENT
  Age: 61 Year
  Sex: Female

DRUGS (5)
  1. CARBIMEN [Concomitant]
     Dosage: 10 MG, PER DAY
     Route: 048
  2. INSULIN [Concomitant]
     Dosage: 10 IU, PER DAU
     Route: 058
  3. DIOVAN HCT [Suspect]
     Indication: HYPERTENSION
     Dosage: 1 DF (VALS 320 MG, HYDR 25 MG), PER DAY
     Route: 048
  4. WARFARIN SODIUM [Concomitant]
     Dosage: 5 MG, PER DAY
  5. WARFARIN SODIUM [Concomitant]
     Dosage: 2.5 MG, PER DAY

REACTIONS (2)
  - RENAL FAILURE [None]
  - DEATH [None]
